FAERS Safety Report 4846147-7 (Version None)
Quarter: 2005Q4

REPORT INFORMATION
  Report Type: 
  Country: None (occurrence: None)
  Receive Date: 20051201
  Receipt Date: 20051123
  Transmission Date: 20060501
  Serious: Yes (Other)
  Sender: FDA-Public Use
  Company Number: 2005159316

PATIENT
  Age: 49 Year
  Sex: Male

DRUGS (10)
  1. LIPITOR [Suspect]
     Indication: ILL-DEFINED DISORDER
     Dosage: 40 MG (40 MG, DAILY)
  2. CYCLOSPORINE [Concomitant]
  3. ATENOLOL [Concomitant]
  4. DILTIAZEM [Concomitant]
  5. CALCITRIOL [Concomitant]
  6. SULFAMETHOXAZOLE W/TRIMETHOPRIM (SULFAMETHOXAZOLE, TRIMETHORPRIM) [Concomitant]
  7. MYCOPHENOLATE SODIUM (MYCOPHENOLIC ACID SODIUM SALT) [Concomitant]
  8. PANTOPRAZOLE SODIUM [Concomitant]
  9. PRAZOSIN GITS [Concomitant]
  10. PREDNISONE (PRESNISOLONE) [Concomitant]

REACTIONS (2)
  - BLOOD CREATINE PHOSPHOKINASE INCREASED [None]
  - RENAL TRANSPLANT [None]
